FAERS Safety Report 16703580 (Version 1)
Quarter: 2019Q3

REPORT INFORMATION
  Report Type: Spontaneous
  Country: US (occurrence: US)
  Receive Date: 20190814
  Receipt Date: 20190814
  Transmission Date: 20191004
  Serious: No
  Sender: FDA-Public Use
  Company Number: US-009507513-1908USA005201

PATIENT
  Age: 26 Year
  Sex: Male

DRUGS (1)
  1. ELOCON [Suspect]
     Active Substance: MOMETASONE FUROATE
     Indication: RASH
     Dosage: CONCENTRATION: 0.10% / 50 GM TUBE
     Route: 061
     Dates: start: 20190620, end: 20190803

REACTIONS (5)
  - Erythema [Not Recovered/Not Resolved]
  - Skin striae [Not Recovered/Not Resolved]
  - Pain of skin [Not Recovered/Not Resolved]
  - Inflammation [Recovering/Resolving]
  - Skin burning sensation [Not Recovered/Not Resolved]

NARRATIVE: CASE EVENT DATE: 2019
